FAERS Safety Report 16569096 (Version 1)
Quarter: 2019Q3

REPORT INFORMATION
  Report Type: Spontaneous
  Country: US (occurrence: US)
  Receive Date: 20190531
  Receipt Date: 20190531
  Transmission Date: 20191004
  Serious: Yes (Death)
  Sender: FDA-Public Use
  Company Number: None

PATIENT
  Age: 37 Year
  Sex: Male
  Weight: 102.1 kg

DRUGS (1)
  1. APIXABAN 5MG [Suspect]
     Active Substance: APIXABAN
     Indication: CLINICAL TRIAL PARTICIPANT
     Route: 048
     Dates: start: 20190425

REACTIONS (8)
  - Syphilis [None]
  - Gastric bypass [None]
  - Blood magnesium decreased [None]
  - Myocardial infarction [None]
  - Hypokalaemia [None]
  - Fall [None]
  - Arrhythmia [None]
  - Palpitations [None]

NARRATIVE: CASE EVENT DATE: 20190522
